FAERS Safety Report 19235191 (Version 2)
Quarter: 2021Q2

REPORT INFORMATION
  Report Type: Spontaneous
  Country: US (occurrence: US)
  Receive Date: 20210509
  Receipt Date: 20210524
  Transmission Date: 20210717
  Serious: No
  Sender: FDA-Public Use
  Company Number: US-ORGANON-O2105USA000101

PATIENT
  Sex: Female

DRUGS (1)
  1. NEXPLANON [Suspect]
     Active Substance: ETONOGESTREL
     Indication: CONTRACEPTION
     Dosage: 68 MILLIGRAM, ONCE, IN THE  LEFT ARM NON DOMINANT
     Route: 059
     Dates: start: 20190304, end: 20201216

REACTIONS (2)
  - Arthralgia [Unknown]
  - Menstrual disorder [Unknown]
